FAERS Safety Report 19031463 (Version 1)
Quarter: 2021Q1

REPORT INFORMATION
  Report Type: Spontaneous
  Country: US (occurrence: US)
  Receive Date: 20210319
  Receipt Date: 20210319
  Transmission Date: 20210420
  Serious: No
  Sender: FDA-Public Use
  Company Number: US-ASTRAZENECA-2021A077738

PATIENT
  Sex: Female
  Weight: 46.3 kg

DRUGS (2)
  1. IMODIUM [Concomitant]
     Active Substance: LOPERAMIDE HYDROCHLORIDE
  2. IMFINZI [Suspect]
     Active Substance: DURVALUMAB
     Indication: LUNG CARCINOMA CELL TYPE UNSPECIFIED STAGE III
     Route: 042
     Dates: start: 20210209

REACTIONS (5)
  - Anxiety [Unknown]
  - Product dose omission issue [Unknown]
  - Diarrhoea [Unknown]
  - Hypoacusis [Unknown]
  - Nervousness [Unknown]
